FAERS Safety Report 7468573-2 (Version None)
Quarter: 2011Q2

REPORT INFORMATION
  Report Type: 
  Country: None (occurrence: None)
  Receive Date: 20110509
  Receipt Date: 20100823
  Transmission Date: 20111010
  Serious: Yes (Other)
  Sender: FDA-Public Use
  Company Number: US-BAYER-201013007NA

PATIENT
  Age: 61 Year
  Sex: Male
  Weight: 160.91 kg

DRUGS (27)
  1. MAGNEVIST [Suspect]
     Indication: RENAL MASS
     Dosage: UNK UNK, ONCE
     Route: 042
     Dates: start: 20040329, end: 20040329
  2. TESTOSTERONE [Concomitant]
  3. WATER PURIFIED [Concomitant]
  4. ASPIRIN [Concomitant]
  5. HYDROCHLOROTHIAZIDE [Concomitant]
  6. MAGNEVIST [Suspect]
     Indication: NUCLEAR MAGNETIC RESONANCE IMAGING BRAIN
  7. OMNISCAN [Suspect]
     Indication: IMAGING PROCEDURE
  8. OPTIMARK [Suspect]
     Indication: BACK PAIN
  9. AVAPRO [Concomitant]
     Dates: start: 20030101, end: 20060101
  10. PRILOSEC [Concomitant]
  11. VIAGRA [Concomitant]
  12. IBUPROFEN [Concomitant]
  13. DYNACIRC [Concomitant]
  14. FLOMAX [Concomitant]
  15. DOVONEX [Concomitant]
  16. OPTIMARK [Suspect]
     Indication: NUCLEAR MAGNETIC RESONANCE IMAGING
     Dates: start: 20060222, end: 20060222
  17. MULTIHANCE [Suspect]
     Indication: IMAGING PROCEDURE
  18. PROHANCE [Suspect]
     Indication: IMAGING PROCEDURE
  19. PREVACID [Concomitant]
  20. VITAMIN B6 [Concomitant]
  21. VITAMIN B12 NOS [Concomitant]
  22. CELEBREX [Concomitant]
  23. MAGNEVIST [Suspect]
     Indication: NUCLEAR MAGNETIC RESONANCE IMAGING ABDOMINAL
     Dates: start: 20010302, end: 20010302
  24. WARFARIN [Concomitant]
     Dates: start: 20020101
  25. BEXTRA [Concomitant]
  26. LORTAB [Concomitant]
  27. NTP [Concomitant]

REACTIONS (17)
  - HYPERHIDROSIS [None]
  - NEPHROGENIC SYSTEMIC FIBROSIS [None]
  - PAIN IN EXTREMITY [None]
  - ARTHRALGIA [None]
  - OEDEMA PERIPHERAL [None]
  - BACK PAIN [None]
  - SKIN HYPERTROPHY [None]
  - TREMOR [None]
  - THROMBOSIS [None]
  - SKIN DISCOLOURATION [None]
  - SKIN HYPERPIGMENTATION [None]
  - SCAR [None]
  - VISUAL ACUITY REDUCED [None]
  - HYPOAESTHESIA [None]
  - SKIN INDURATION [None]
  - DEFORMITY [None]
  - GENERAL PHYSICAL HEALTH DETERIORATION [None]
